FAERS Safety Report 14873839 (Version 8)
Quarter: 2020Q3

REPORT INFORMATION
  Report Type: Report from Study
  Country: TR (occurrence: TR)
  Receive Date: 20180510
  Receipt Date: 20190806
  Transmission Date: 20201104
  Serious: Yes (Death, Hospitalization, Other)
  Sender: FDA-Public Use
  Company Number: TR-JNJFOC-20180433149

PATIENT
  Age: 82 Year
  Sex: Male

DRUGS (11)
  1. OMEPRAZID [Concomitant]
     Active Substance: OMEPRAZOLE SODIUM
  2. CORASPIN [Concomitant]
     Active Substance: ASPIRIN
  3. DESAL (FUROSEMIDE) [Concomitant]
     Active Substance: FUROSEMIDE
  4. IBRUTINIB [Suspect]
     Active Substance: IBRUTINIB
     Route: 048
     Dates: start: 20140402
  5. ARLEC [Concomitant]
     Active Substance: CARVEDILOL
  6. RAMIPRIL. [Concomitant]
     Active Substance: RAMIPRIL
  7. DIGOXIN. [Concomitant]
     Active Substance: DIGOXIN
  8. SPIRONOLACTONE. [Concomitant]
     Active Substance: SPIRONOLACTONE
  9. PROPANOLOL HYDROCHLORIDE [Concomitant]
     Active Substance: PROPRANOLOL HYDROCHLORIDE
  10. IBRUTINIB [Suspect]
     Active Substance: IBRUTINIB
     Indication: CHRONIC LYMPHOCYTIC LEUKAEMIA
     Route: 048
     Dates: start: 20131001
  11. DEMEPRAZOL [Concomitant]

REACTIONS (4)
  - Delirium [Recovered/Resolved]
  - Oedema peripheral [Recovered/Resolved]
  - Cardiac failure [Fatal]
  - Pleural effusion [Recovered/Resolved]

NARRATIVE: CASE EVENT DATE: 20180417
